FAERS Safety Report 7632691-6 (Version None)
Quarter: 2011Q3

REPORT INFORMATION
  Report Type: 
  Country: None (occurrence: None)
  Receive Date: 20110725
  Receipt Date: 20101201
  Transmission Date: 20111222
  Serious: No
  Sender: FDA-Public Use
  Company Number: US-BRISTOL-MYERS SQUIBB COMPANY-15417413

PATIENT
  Age: 74 Year
  Sex: Female

DRUGS (9)
  1. CLARITIN [Concomitant]
  2. XANAX [Concomitant]
     Dosage: 1 DF=0.25 OR 1/2 TAB
  3. TESSALON [Concomitant]
  4. WARFARIN SODIUM [Suspect]
     Indication: CARDIAC ASSISTANCE DEVICE USER
  5. ASPIRIN [Concomitant]
     Dosage: LOW DOSE
  6. WARFARIN SODIUM [Suspect]
     Indication: CARDIOVERSION
  7. SOTALOL HCL [Concomitant]
  8. CELEXA [Concomitant]
  9. DIOVAN [Concomitant]

REACTIONS (7)
  - JOINT STIFFNESS [None]
  - CONFUSIONAL STATE [None]
  - INTERNATIONAL NORMALISED RATIO DECREASED [None]
  - DYSSTASIA [None]
  - DISTURBANCE IN ATTENTION [None]
  - ARTHRALGIA [None]
  - MEMORY IMPAIRMENT [None]
